FAERS Safety Report 5835162-2 (Version None)
Quarter: 2008Q3

REPORT INFORMATION
  Report Type: 
  Country: None (occurrence: None)
  Receive Date: 20080729
  Receipt Date: 20080408
  Transmission Date: 20090109
  Serious: No
  Sender: FDA-Public Use
  Company Number: 08H-163-0314148-00

PATIENT
  Sex: Female

DRUGS (1)
  1. LIDOCAINE HCL 1% + EPI. 1:100,000 INJECTION [Suspect]
     Indication: ANAESTHESIA
     Dosage: LESS THAN 10ML
     Dates: start: 20080301, end: 20080301

REACTIONS (1)
  - BRADYCARDIA [None]
